FAERS Safety Report 24436257 (Version 1)
Quarter: 2024Q4

REPORT INFORMATION
  Report Type: Spontaneous
  Country: NL (occurrence: NL)
  Receive Date: 20241015
  Receipt Date: 20241015
  Transmission Date: 20250115
  Serious: Yes (Hospitalization, Other)
  Sender: AUROBINDO
  Company Number: NL-LRB-01005097

PATIENT
  Age: 86 Year
  Sex: Male
  Weight: 77 kg

DRUGS (2)
  1. HYDROCHLOROTHIAZIDE [Suspect]
     Active Substance: HYDROCHLOROTHIAZIDE
     Indication: Hypertension
     Dosage: 1 PIECE ONCE A DAY
     Route: 065
     Dates: start: 20220101, end: 20240926
  2. POTASSIUM CHLORIDE [Concomitant]
     Active Substance: POTASSIUM CHLORIDE
     Indication: Product used for unknown indication
     Dosage: INFUUS, 1 MG/MG (MILLIGRAM PER MILLIGRAM)
     Route: 065

REACTIONS (1)
  - Hypokalaemia [Recovered/Resolved]
